FAERS Safety Report 9025020 (Version 1)
Quarter: 2013Q1

REPORT INFORMATION
  Report Type: Spontaneous
  Country: BR (occurrence: BR)
  Receive Date: 20130121
  Receipt Date: 20130121
  Transmission Date: 20140127
  Serious: Yes (Other)
  Sender: FDA-Public Use
  Company Number: PHHY2012BR107150

PATIENT
  Age: 50 Year
  Sex: Female
  Weight: 62 kg

DRUGS (4)
  1. MERIGEST [Suspect]
     Indication: ENDOMETRIOSIS
     Dosage: 1 DF, DAILY
     Route: 048
  2. MERIGEST [Suspect]
     Indication: HOT FLUSH
  3. LADOGAL [Suspect]
     Indication: HOT FLUSH
     Dosage: 1 DF, DAILY
     Route: 048
  4. ENALAPRIL [Concomitant]
     Indication: HYPERTENSION
     Dosage: 10 MG, BID
     Route: 048

REACTIONS (6)
  - Nervousness [Recovered/Resolved]
  - Feeling abnormal [Unknown]
  - Irritability [Recovered/Resolved]
  - Headache [Unknown]
  - Hot flush [Unknown]
  - Drug dependence [Recovered/Resolved]
